FAERS Safety Report 11127316 (Version 1)
Quarter: 2015Q2

REPORT INFORMATION
  Report Type: Spontaneous
  Country: US (occurrence: None)
  Receive Date: 20150520
  Receipt Date: 20150520
  Transmission Date: 20150821
  Serious: No
  Sender: FDA-Public Use
  Company Number: None

PATIENT
  Age: 7 Year
  Sex: Female
  Weight: 23.86 kg

DRUGS (1)
  1. METADATE CD [Suspect]
     Active Substance: METHYLPHENIDATE HYDROCHLORIDE
     Indication: ATTENTION DEFICIT/HYPERACTIVITY DISORDER
     Route: 048
     Dates: start: 20150209, end: 20150330

REACTIONS (4)
  - Psychomotor hyperactivity [None]
  - Restlessness [None]
  - Weight decreased [None]
  - Condition aggravated [None]

NARRATIVE: CASE EVENT DATE: 20150330
